FAERS Safety Report 26001258 (Version 1)
Quarter: 2025Q4

REPORT INFORMATION
  Report Type: Spontaneous
  Country: EU (occurrence: EU)
  Receive Date: 20251105
  Receipt Date: 20251105
  Transmission Date: 20260118
  Serious: Yes (Life-Threatening, Hospitalization)
  Sender: AMGEN
  Company Number: EU-AMGEN-POLSP2025214976

PATIENT
  Age: 72 Year
  Sex: Male

DRUGS (6)
  1. NPLATE [Suspect]
     Active Substance: ROMIPLOSTIM
     Indication: Immune thrombocytopenia
     Dosage: 125 MICROGRAM  (1 UG/KG)
     Route: 065
     Dates: start: 20230522
  2. NPLATE [Suspect]
     Active Substance: ROMIPLOSTIM
     Dosage: 125 MICROGRAM  (3 UG/KG)
     Route: 065
  3. NPLATE [Suspect]
     Active Substance: ROMIPLOSTIM
     Dosage: 250 MICROGRAM, QWK
     Route: 065
  4. NPLATE [Suspect]
     Active Substance: ROMIPLOSTIM
     Dosage: 125 MICROGRAM PER DOSE
     Route: 065
  5. PREDNISONE [Concomitant]
     Active Substance: PREDNISONE
     Dosage: 1 MILLIGRAM/KILOGRAM
  6. AZATHIOPRINE [Concomitant]
     Active Substance: AZATHIOPRINE
     Dosage: 150 MILLIGRAM
     Dates: start: 2016

REACTIONS (10)
  - Appendicitis [Unknown]
  - Peritonitis [Unknown]
  - Large intestine perforation [Unknown]
  - Post thrombotic syndrome [Unknown]
  - Varicose vein [Unknown]
  - Obesity [Unknown]
  - Hyperglycaemia [Unknown]
  - Hypertension [Unknown]
  - Gout [Unknown]
  - Gastrooesophageal reflux disease [Unknown]
